FAERS Safety Report 7985488-1 (Version None)
Quarter: 2011Q4

REPORT INFORMATION
  Report Type: 
  Country: None (occurrence: None)
  Receive Date: 20111216
  Receipt Date: 20110209
  Transmission Date: 20120403
  Serious: No
  Sender: FDA-Public Use
  Company Number: US-ABBOTT-11P-163-0705251-00

PATIENT
  Sex: Male

DRUGS (5)
  1. MANY OTHER UNKNOWN MEDICATIONS [Concomitant]
     Indication: PRODUCT USED FOR UNKNOWN INDICATION
  2. NOREPINEPHRINE BITARTRATE [Concomitant]
     Indication: PRODUCT USED FOR UNKNOWN INDICATION
  3. VERSED [Concomitant]
     Indication: PRODUCT USED FOR UNKNOWN INDICATION
  4. ATRACURIUM [Concomitant]
     Indication: PRODUCT USED FOR UNKNOWN INDICATION
  5. NIMBEX [Suspect]
     Indication: SEDATION
     Dates: start: 20110209, end: 20110209

REACTIONS (4)
  - DRUG INEFFECTIVE [None]
  - EXPIRED DRUG ADMINISTERED [None]
  - RESPIRATORY RATE INCREASED [None]
  - HYPERTENSION [None]
